FAERS Safety Report 4744635-5 (Version None)
Quarter: 2005Q3

REPORT INFORMATION
  Report Type: 
  Country: None (occurrence: None)
  Receive Date: 20050815
  Receipt Date: 20050808
  Transmission Date: 20060218
  Serious: Yes (Other)
  Sender: FDA-Public Use
  Company Number: PHEH2005US08850

PATIENT
  Sex: Male

DRUGS (2)
  1. DIOVAN [Suspect]
     Dosage: UNK
     Route: 048
  2. LOTREL [Suspect]
     Dosage: UNK
     Route: 048

REACTIONS (1)
  - MYOCARDIAL INFARCTION [None]
